FAERS Safety Report 16676042 (Version 6)
Quarter: 2020Q1

REPORT INFORMATION
  Report Type: Spontaneous
  Country: US (occurrence: US)
  Receive Date: 20190807
  Receipt Date: 20200314
  Transmission Date: 20200409
  Serious: Yes (Other)
  Sender: FDA-Public Use
  Company Number: US-009507513-1908USA001291

PATIENT
  Age: 21 Year
  Sex: Female
  Weight: 108.86 kg

DRUGS (1)
  1. NEXPLANON [Suspect]
     Active Substance: ETONOGESTREL
     Dosage: 68 MILLIGRAM, 1 IMPLANT/ROD EVERY 3 YEARS, LEFT ARM
     Route: 059
     Dates: start: 201712

REACTIONS (5)
  - Abortion [Recovered/Resolved]
  - Complication associated with device [Unknown]
  - Product dose omission [Unknown]
  - Pregnancy with implant contraceptive [Recovered/Resolved]
  - Unintended pregnancy [Recovered/Resolved]

NARRATIVE: CASE EVENT DATE: 20190801
